FAERS Safety Report 13800890 (Version 1)
Quarter: 2017Q3

REPORT INFORMATION
  Report Type: Spontaneous
  Country: US (occurrence: US)
  Receive Date: 20170727
  Receipt Date: 20170727
  Transmission Date: 20171127
  Serious: Yes (Death, Hospitalization)
  Sender: FDA-Public Use
  Company Number: US-ALKEM LABORATORIES LIMITED-US-ALKEM-2017-00513

PATIENT
  Age: 53 Year
  Sex: Male

DRUGS (2)
  1. AMLODIPINE BESYLATE. [Suspect]
     Active Substance: AMLODIPINE BESYLATE
     Indication: DEPRESSION
  2. AMLODIPINE BESYLATE. [Suspect]
     Active Substance: AMLODIPINE BESYLATE
     Indication: HYPERTENSION
     Dosage: EIGHTY 10 MG TABLETS
     Route: 048

REACTIONS (6)
  - Toxicity to various agents [Fatal]
  - Hyperhidrosis [Fatal]
  - Hypotension [Fatal]
  - Suicide attempt [Fatal]
  - Intentional overdose [Fatal]
  - Brain injury [Fatal]
